FAERS Safety Report 9534966 (Version 2)
Quarter: 2013Q3

REPORT INFORMATION
  Report Type: Spontaneous
  Country: CL (occurrence: CL)
  Receive Date: 20130918
  Receipt Date: 20130924
  Transmission Date: 20140515
  Serious: Yes (Hospitalization)
  Sender: FDA-Public Use
  Company Number: CL-PFIZER INC-2013266418

PATIENT
  Age: 37 Year
  Sex: Female

DRUGS (4)
  1. CHAMPIX [Suspect]
     Indication: SMOKING CESSATION THERAPY
     Dosage: UNK
     Route: 048
     Dates: start: 201309, end: 20130912
  2. ACETAMINOPHEN [Concomitant]
     Dosage: UNK
  3. YASMIN [Concomitant]
     Dosage: UNK
  4. ESOMEPRAZOLE [Concomitant]

REACTIONS (7)
  - Tachycardia [Recovered/Resolved]
  - Chest pain [Recovered/Resolved]
  - Respiratory distress [Recovered/Resolved]
  - Blood pressure increased [Recovered/Resolved]
  - Dizziness [Recovered/Resolved]
  - Dysphagia [Recovered/Resolved]
  - Feeling abnormal [Recovered/Resolved]
